FAERS Safety Report 25117206 (Version 1)
Quarter: 2025Q1

REPORT INFORMATION
  Report Type: Spontaneous
  Country: CH (occurrence: CH)
  Receive Date: 20250325
  Receipt Date: 20250325
  Transmission Date: 20250409
  Serious: Yes (Death, Hospitalization, Other)
  Sender: AMGEN
  Company Number: CH-AMGEN-CHESP2025054423

PATIENT

DRUGS (1)
  1. PROLIA [Suspect]
     Active Substance: DENOSUMAB
     Indication: Osteoporosis
     Route: 065

REACTIONS (45)
  - Death [Fatal]
  - Subdural haematoma [Fatal]
  - Skull fracture [Fatal]
  - Spinal column injury [Fatal]
  - Unevaluable event [Unknown]
  - Extradural haematoma [Unknown]
  - Subarachnoid haemorrhage [Unknown]
  - Cerebral haemorrhage [Unknown]
  - Head injury [Unknown]
  - Concussion [Unknown]
  - Haemorrhage intracranial [Unknown]
  - Face injury [Unknown]
  - Craniofacial fracture [Unknown]
  - Haemothorax [Unknown]
  - Pneumothorax [Unknown]
  - Rib fracture [Unknown]
  - Sternal fracture [Unknown]
  - Chest injury [Unknown]
  - Cervical vertebral fracture [Unknown]
  - Thoracic vertebral fracture [Unknown]
  - Lumbar vertebral fracture [Unknown]
  - Pelvic fracture [Unknown]
  - Delirium [Unknown]
  - Respiratory failure [Unknown]
  - Sepsis [Unknown]
  - Acetabulum fracture [Unknown]
  - Femur fracture [Unknown]
  - Tibia fracture [Unknown]
  - Fibula fracture [Unknown]
  - Foot fracture [Unknown]
  - Fall [Unknown]
  - Pneumonia [Unknown]
  - Brain contusion [Unknown]
  - Clostridium colitis [Unknown]
  - Clavicle fracture [Unknown]
  - Pelvic bone injury [Unknown]
  - Scapula fracture [Unknown]
  - Humerus fracture [Unknown]
  - Radius fracture [Unknown]
  - Ulna fracture [Unknown]
  - Hand fracture [Unknown]
  - Limb injury [Unknown]
  - Patella fracture [Unknown]
  - Urinary tract infection [Unknown]
  - Disease complication [Unknown]
